FAERS Safety Report 4336636-6 (Version None)
Quarter: 2004Q2

REPORT INFORMATION
  Report Type: 
  Country: None (occurrence: None)
  Receive Date: 20040412
  Receipt Date: 20040405
  Transmission Date: 20050107
  Serious: Yes (Hospitalization)
  Sender: FDA-Public Use
  Company Number: FR-MERCK-0404FRA00026

PATIENT
  Age: 81 Year
  Sex: Female

DRUGS (6)
  1. CELECOXIB [Concomitant]
     Indication: OSTEOARTHRITIS
     Route: 048
     Dates: start: 20030610, end: 20030617
  2. DIGOXIN [Concomitant]
     Route: 048
  3. INDOCIN [Suspect]
     Indication: OSTEOARTHRITIS
     Route: 054
     Dates: start: 20030610, end: 20030617
  4. PIROXICAM [Concomitant]
     Indication: OSTEOARTHRITIS
     Route: 030
     Dates: start: 20030610, end: 20030617
  5. SPIRONOLACTONE [Concomitant]
     Indication: HYPERTENSION
     Route: 048
  6. TETRAZEPAM [Concomitant]
     Indication: OSTEOARTHRITIS
     Route: 048
     Dates: start: 20030610, end: 20030617

REACTIONS (2)
  - COGNITIVE DISORDER [None]
  - HYPONATRAEMIA [None]
